FAERS Safety Report 5531157-7 (Version None)
Quarter: 2007Q4

REPORT INFORMATION
  Report Type: 
  Country: None (occurrence: None)
  Receive Date: 20071130
  Receipt Date: 20071120
  Transmission Date: 20080405
  Serious: Yes (Other)
  Sender: FDA-Public Use
  Company Number: CN-PFIZER INC-2007098822

PATIENT
  Age: 54 Year
  Sex: Male

DRUGS (1)
  1. CELEBREX [Suspect]
     Indication: PAIN
     Route: 048

REACTIONS (5)
  - COUGH [None]
  - DERMATITIS [None]
  - INSOMNIA [None]
  - IRIDOCYCLITIS [None]
  - SYNOVITIS [None]
